FAERS Safety Report 7367433-5 (Version None)
Quarter: 2011Q1

REPORT INFORMATION
  Report Type: 
  Country: None (occurrence: None)
  Receive Date: 20110322
  Receipt Date: 20110316
  Transmission Date: 20110831
  Serious: Yes (Other)
  Sender: FDA-Public Use
  Company Number: GB-PFIZER INC-2011039079

PATIENT
  Sex: Male

DRUGS (2)
  1. CARDURA [Suspect]
     Indication: BLOOD PRESSURE INCREASED
     Dosage: 2 MG, UNK
  2. CARDURA [Suspect]
     Dosage: 1 MG, UNK

REACTIONS (2)
  - DEPRESSED LEVEL OF CONSCIOUSNESS [None]
  - BLOOD PRESSURE DECREASED [None]
